FAERS Safety Report 11066909 (Version 2)
Quarter: 2015Q2

REPORT INFORMATION
  Report Type: Spontaneous
  Country: US (occurrence: US)
  Receive Date: 20150425
  Receipt Date: 20150525
  Transmission Date: 20150821
  Serious: No
  Sender: FDA-Public Use
  Company Number: US-JNJFOC-20130716696

PATIENT
  Age: 54 Year
  Sex: Female
  Weight: 124.74 kg

DRUGS (2)
  1. SIMPONI [Suspect]
     Active Substance: GOLIMUMAB
     Indication: PSORIATIC ARTHROPATHY
     Route: 058
     Dates: start: 201208
  2. COLAZAL [Concomitant]
     Active Substance: BALSALAZIDE DISODIUM
     Indication: COLITIS ULCERATIVE
     Dosage: 3-5 CAPSULES
     Route: 048
     Dates: start: 2005

REACTIONS (5)
  - Fatigue [Not Recovered/Not Resolved]
  - Impaired healing [Not Recovered/Not Resolved]
  - Dermatitis contact [Recovered/Resolved]
  - Device malfunction [Unknown]
  - Lower extremity mass [Not Recovered/Not Resolved]

NARRATIVE: CASE EVENT DATE: 201208
